FAERS Safety Report 6821017-3 (Version None)
Quarter: 2010Q3

REPORT INFORMATION
  Report Type: 
  Country: None (occurrence: None)
  Receive Date: 20100707
  Receipt Date: 20071116
  Transmission Date: 20110219
  Serious: No
  Sender: FDA-Public Use
  Company Number: US-PFIZER INC-2007098235

PATIENT
  Sex: Female
  Weight: 81.65 kg

DRUGS (7)
  1. ZOLOFT [Suspect]
     Indication: DEPRESSION
     Route: 048
  2. SERTRALINE HCL [Suspect]
     Indication: DEPRESSION
     Route: 048
  3. BUSPAR [Concomitant]
  4. TRICOR [Concomitant]
  5. UNIRETIC [Concomitant]
  6. CLARITIN [Concomitant]
  7. AMITRIPTYLINE [Concomitant]

REACTIONS (2)
  - ABDOMINAL DISCOMFORT [None]
  - MALAISE [None]
